FAERS Safety Report 20674126 (Version 1)
Quarter: 2022Q2

REPORT INFORMATION
  Report Type: Report from Study
  Country: US (occurrence: US)
  Receive Date: 20220405
  Receipt Date: 20220405
  Transmission Date: 20220721
  Serious: Yes (Other)
  Sender: FDA-Public Use
  Company Number: US-ABBVIE-22K-163-4339723-00

PATIENT
  Age: 41 Year
  Sex: Female

DRUGS (5)
  1. ORILISSA [Suspect]
     Active Substance: ELAGOLIX SODIUM
     Indication: Product used for unknown indication
     Route: 048
     Dates: start: 202003
  2. ORILISSA [Suspect]
     Active Substance: ELAGOLIX SODIUM
     Route: 048
  3. PFIZER-BIONTECH COVID-19 VACCINE [Concomitant]
     Active Substance: TOZINAMERAN
     Indication: COVID-19 immunisation
     Dosage: FIRST DOSE.
     Route: 030
     Dates: start: 20201201, end: 20201201
  4. PFIZER-BIONTECH COVID-19 VACCINE [Concomitant]
     Active Substance: TOZINAMERAN
     Dosage: SECOND DOSE.
     Route: 030
     Dates: start: 20210101, end: 20210101
  5. PFIZER-BIONTECH COVID-19 VACCINE [Concomitant]
     Active Substance: TOZINAMERAN
     Dosage: THIRD DOSE.
     Route: 030
     Dates: start: 20211001, end: 20211001

REACTIONS (7)
  - Haemorrhagic cyst [Unknown]
  - Endometriosis [Unknown]
  - Hot flush [Recovered/Resolved]
  - Headache [Recovered/Resolved]
  - Drug ineffective [Recovered/Resolved]
  - Cyst [Recovered/Resolved]
  - Pain [Unknown]

NARRATIVE: CASE EVENT DATE: 20210701
